FAERS Safety Report 7656084-0 (Version None)
Quarter: 2011Q3

REPORT INFORMATION
  Report Type: 
  Country: None (occurrence: None)
  Receive Date: 20110801
  Receipt Date: 20110722
  Transmission Date: 20111222
  Serious: Yes (Other)
  Sender: FDA-Public Use
  Company Number: ACO_26067_2011

PATIENT
  Age: 37 Year
  Sex: Female

DRUGS (5)
  1. CELEXA [Concomitant]
  2. EFFEXOR [Concomitant]
  3. AMPYRA [Suspect]
     Indication: GAIT DISTURBANCE
     Dosage: 10 MG, Q 12 HRS,
     Dates: start: 20100101
  4. AMBIEN [Concomitant]
  5. KLONOPIN [Concomitant]

REACTIONS (1)
  - HEPATIC ENZYME INCREASED [None]
